FAERS Safety Report 5485795-0 (Version None)
Quarter: 2007Q4

REPORT INFORMATION
  Report Type: 
  Country: None (occurrence: None)
  Receive Date: 20071015
  Receipt Date: 20071005
  Transmission Date: 20080405
  Serious: Yes (Hospitalization)
  Sender: FDA-Public Use
  Company Number: GB-ROCHE-524176

PATIENT

DRUGS (1)
  1. IBANDRONATE SODIUM [Suspect]
     Indication: BONE DISORDER
     Route: 042

REACTIONS (1)
  - ANAPHYLACTIC REACTION [None]
